FAERS Safety Report 18062597 (Version 2)
Quarter: 2020Q3

REPORT INFORMATION
  Report Type: Report from Study
  Country: US (occurrence: US)
  Receive Date: 20200723
  Receipt Date: 20200930
  Transmission Date: 20201103
  Serious: No
  Sender: FDA-Public Use
  Company Number: US-MYLANLABS-2020M1065900

PATIENT
  Age: 51 Year
  Sex: Female
  Weight: 110 kg

DRUGS (7)
  1. KLONOPIN [Concomitant]
     Active Substance: CLONAZEPAM
     Dosage: 1 MILLIGRAM, BID
     Route: 048
  2. HALDOL [Concomitant]
     Active Substance: HALOPERIDOL
     Dosage: 10 MILLIGRAM, BID
     Route: 048
  3. NEURONTIN [Concomitant]
     Active Substance: GABAPENTIN
     Dosage: 300 MILLIGRAM, TID
     Route: 048
  4. CLOZAPINE. [Suspect]
     Active Substance: CLOZAPINE
     Indication: SCHIZOPHRENIA
     Dosage: 50 MILLIGRAM, HS, 25?50 MILLIGRAM
     Route: 048
  5. INVEGA SUSTENNA [Concomitant]
     Active Substance: PALIPERIDONE PALMITATE
     Dosage: 234 MILLIGRAM, MONTHLY
     Route: 030
  6. TRAZODONE [Concomitant]
     Active Substance: TRAZODONE HYDROCHLORIDE
     Dosage: 50 MILLIGRAM, HS
     Route: 048
  7. VISTARIL                           /00058402/ [Concomitant]
     Active Substance: HYDROXYZINE HYDROCHLORIDE
     Indication: ANXIETY
     Dosage: 50 MILLIGRAM, TID, PRN
     Route: 048

REACTIONS (3)
  - Haemoglobin increased [Recovered/Resolved]
  - White blood cell count increased [Not Recovered/Not Resolved]
  - Neutrophil count increased [Recovered/Resolved]

NARRATIVE: CASE EVENT DATE: 20200804
